FAERS Safety Report 14916408 (Version 3)
Quarter: 2019Q2

REPORT INFORMATION
  Report Type: Spontaneous
  Country: CZ (occurrence: CZ)
  Receive Date: 20180519
  Receipt Date: 20190405
  Transmission Date: 20190711
  Serious: Yes (Other)
  Sender: FDA-Public Use
  Company Number: CZ-AUROBINDO-AUR-APL-2018-004582

PATIENT

DRUGS (23)
  1. ALENDRONIC ACID [Suspect]
     Active Substance: ALENDRONIC ACID
     Indication: PRODUCT USED FOR UNKNOWN INDICATION
     Dosage: UNK
     Route: 065
  2. CORDARONE [Interacting]
     Active Substance: AMIODARONE HYDROCHLORIDE
     Dosage: 200 MILLIGRAM, ONCE A DAY
     Route: 048
  3. FURON [Suspect]
     Active Substance: FUROSEMIDE
     Dosage: 40 MILLIGRAM, ONCE A DAY, 1/2-0-0
     Route: 065
  4. MILURIT [Concomitant]
     Active Substance: ALLOPURINOL
     Indication: HYPERURICAEMIA
     Dosage: 300 MILLIGRAM, ONCE A DAY
     Route: 048
  5. WARFARIN [Suspect]
     Active Substance: WARFARIN
     Indication: PRODUCT USED FOR UNKNOWN INDICATION
     Dosage: 3 MILLIGRAM, ONCE A DAY
     Route: 016
  6. CARVEDILOL FILM COATED TABLETS [Interacting]
     Active Substance: CARVEDILOL
     Dosage: 6.25 MILLIGRAM, ONCE A DAY
     Route: 048
  7. DIGOXIN. [Interacting]
     Active Substance: DIGOXIN
     Dosage: 0.125 UG,QD
     Route: 048
  8. DIHYDROERGOTOXINE [Interacting]
     Active Substance: ERGOLOIDS
     Indication: PRODUCT USED FOR UNKNOWN INDICATION
     Dosage: UNK
     Route: 016
  9. VEROSPIRON [Interacting]
     Active Substance: SPIRONOLACTONE
     Indication: PRODUCT USED FOR UNKNOWN INDICATION
     Dosage: 25 MILLIGRAM, ONCE A DAY
     Route: 048
  10. FLUTICA [Concomitant]
     Indication: PRODUCT USED FOR UNKNOWN INDICATION
     Dosage: 50/250
     Route: 065
  11. ALENDRONATE SODIUM. [Suspect]
     Active Substance: ALENDRONATE SODIUM
     Indication: OSTEOPOROSIS
     Dosage: 70 MG,QW
     Route: 048
     Dates: start: 2006
  12. SECATOXIN [Suspect]
     Active Substance: ERGOLOID MESYLATES
     Indication: PRODUCT USED FOR UNKNOWN INDICATION
     Dosage: GTT; 20-20-20
     Route: 065
  13. CORDARONE [Interacting]
     Active Substance: AMIODARONE HYDROCHLORIDE
     Indication: CARDIAC FAILURE
     Dosage: 1-0-0
     Route: 048
  14. AIRFLUSAN FORSPIRO [Concomitant]
     Active Substance: FLUTICASONE PROPIONATE\SALMETEROL XINAFOATE
     Indication: PRODUCT USED FOR UNKNOWN INDICATION
     Dosage: 1-0-1; 50/250
     Route: 065
  15. DIGOXIN. [Interacting]
     Active Substance: DIGOXIN
     Dosage: 0.13 MICROGRAM, ONCE A DAY, 1-0-0
     Route: 048
  16. PENTOMER [Suspect]
     Active Substance: PENTOXIFYLLINE
     Indication: PRODUCT USED FOR UNKNOWN INDICATION
     Dosage: 1-1-1 (3)
     Route: 065
  17. CARVEDILOL FILM COATED TABLETS [Interacting]
     Active Substance: CARVEDILOL
     Indication: PRODUCT USED FOR UNKNOWN INDICATION
     Dosage: UNK
     Route: 065
  18. DITHIADEN [Concomitant]
     Active Substance: BISULEPIN
     Indication: PRODUCT USED FOR UNKNOWN INDICATION
     Dosage: 2 MILLIGRAM, ONCE A DAY
     Route: 065
  19. PENTOXIFYLLINE. [Concomitant]
     Active Substance: PENTOXIFYLLINE
     Dosage: 400 MILLIGRAM
     Route: 065
  20. FURON [Suspect]
     Active Substance: FUROSEMIDE
     Indication: PRODUCT USED FOR UNKNOWN INDICATION
     Dosage: 20 MILLIGRAM, AS NECESSARY
     Route: 048
  21. PENTOXIFYLLINE. [Concomitant]
     Active Substance: PENTOXIFYLLINE
     Indication: PRODUCT USED FOR UNKNOWN INDICATION
     Dosage: 1200 MILLIGRAM
     Route: 065
  22. DIGOXIN. [Interacting]
     Active Substance: DIGOXIN
     Indication: CARDIAC FAILURE
     Dosage: UNK
     Route: 065
  23. AMIODARONE [Interacting]
     Active Substance: AMIODARONE
     Indication: PRODUCT USED FOR UNKNOWN INDICATION
     Dosage: 200 MILLIGRAM, ONCE A DAY, 1-0-0
     Route: 065

REACTIONS (16)
  - Heart rate decreased [Unknown]
  - Diarrhoea [Unknown]
  - Vomiting [Unknown]
  - Vision blurred [Unknown]
  - Drug interaction [Unknown]
  - Fall [Unknown]
  - Overdose [Unknown]
  - Labelled drug-drug interaction medication error [Unknown]
  - Bradycardia [Unknown]
  - Cardioactive drug level increased [Unknown]
  - Hyperkalaemia [Unknown]
  - Weight decreased [Unknown]
  - Nausea [Unknown]
  - Toxicity to various agents [Unknown]
  - Decreased appetite [Unknown]
  - Hypotension [Unknown]
